FAERS Safety Report 23668130 (Version 1)
Quarter: 2024Q1

REPORT INFORMATION
  Report Type: Report from Study
  Country: US (occurrence: US)
  Receive Date: 20240325
  Receipt Date: 20240325
  Transmission Date: 20240409
  Serious: Yes (Hospitalization)
  Sender: FDA-Public Use
  Company Number: US-Eisai-EC-2024-162059

PATIENT
  Age: 55 Year
  Sex: Female

DRUGS (5)
  1. LENVIMA [Suspect]
     Active Substance: LENVATINIB
     Indication: Endometrial cancer
     Route: 048
     Dates: start: 20231004, end: 20231031
  2. LENVIMA [Suspect]
     Active Substance: LENVATINIB
     Route: 048
     Dates: start: 20231121, end: 20231210
  3. LENVIMA [Suspect]
     Active Substance: LENVATINIB
     Dosage: DOSE DECREASED TO 14 MG BUT WAS INSTRUCTED TO TAKE 10 MG UNTIL NEW PRESCRIPTION OF 14MG  GETS DELIVE
     Route: 048
     Dates: start: 20231211, end: 20231213
  4. LENVIMA [Suspect]
     Active Substance: LENVATINIB
     Route: 048
     Dates: start: 20231214, end: 20240217
  5. KEYTRUDA [Concomitant]
     Active Substance: PEMBROLIZUMAB
     Indication: Endometrial cancer
     Dosage: DOSE AND FREQUENCY UNKNOWN
     Route: 042

REACTIONS (3)
  - Dehydration [Unknown]
  - Ascites [Not Recovered/Not Resolved]
  - Palmar-plantar erythrodysaesthesia syndrome [Recovering/Resolving]

NARRATIVE: CASE EVENT DATE: 20240101
